FAERS Safety Report 9138883 (Version 1)
Quarter: 2013Q1

REPORT INFORMATION
  Report Type: Spontaneous
  Country: IR (occurrence: IR)
  Receive Date: 20130305
  Receipt Date: 20130305
  Transmission Date: 20140127
  Serious: Yes (Hospitalization, Other)
  Sender: FDA-Public Use
  Company Number: IR-ELI_LILLY_AND_COMPANY-IR201302007733

PATIENT
  Age: 64 Year
  Sex: Male

DRUGS (3)
  1. OLANZAPINE [Suspect]
     Dosage: 15 MG, QD
  2. SODIUM VALPROATE [Concomitant]
     Dosage: 1200 MG, QD
  3. BIPERIDEN [Concomitant]
     Dosage: 4 MG, QD

REACTIONS (1)
  - Deep vein thrombosis [Recovered/Resolved]
